FAERS Safety Report 17573115 (Version 1)
Quarter: 2020Q1

REPORT INFORMATION
  Report Type: Spontaneous
  Country: NL (occurrence: NL)
  Receive Date: 20200323
  Receipt Date: 20200323
  Transmission Date: 20200409
  Serious: Yes (Other)
  Sender: FDA-Public Use
  Company Number: NL-MYLANLABS-2020M1030927

PATIENT
  Age: 62 Year
  Sex: Female
  Weight: 115 kg

DRUGS (1)
  1. LOSARTAN. [Suspect]
     Active Substance: LOSARTAN
     Indication: HYPERTENSION
     Dosage: 50 MG, 1DD, 1
     Dates: start: 20190703, end: 20191226

REACTIONS (4)
  - Therapeutic response unexpected [Unknown]
  - Palpitations [Not Recovered/Not Resolved]
  - Syncope [Unknown]
  - Heart rate increased [Not Recovered/Not Resolved]

NARRATIVE: CASE EVENT DATE: 20190825
